FAERS Safety Report 6871547-3 (Version None)
Quarter: 2010Q3

REPORT INFORMATION
  Report Type: 
  Country: None (occurrence: None)
  Receive Date: 20100723
  Receipt Date: 20100714
  Transmission Date: 20110219
  Serious: Yes (Other)
  Sender: FDA-Public Use
  Company Number: PHHY2010US07416

PATIENT
  Sex: Female

DRUGS (3)
  1. EXTAVIA [Suspect]
     Indication: MULTIPLE SCLEROSIS
     Dosage: 0.25 MG, QOD
     Route: 058
     Dates: start: 20091201
  2. CONTRACEPTIVES NOS [Concomitant]
     Indication: CONTRACEPTION
  3. CYMBALTA [Concomitant]
     Dosage: 30 MG BID

REACTIONS (14)
  - ASTHENIA [None]
  - CENTRAL NERVOUS SYSTEM LESION [None]
  - COUGH [None]
  - EYE PRURITUS [None]
  - FEELING HOT [None]
  - HEADACHE [None]
  - HYPOAESTHESIA [None]
  - INSOMNIA [None]
  - MENSTRUAL DISORDER [None]
  - OROPHARYNGEAL PAIN [None]
  - PARAESTHESIA [None]
  - RESTLESS LEGS SYNDROME [None]
  - SLEEP APNOEA SYNDROME [None]
  - THIRST [None]
